FAERS Safety Report 9484770 (Version 5)
Quarter: 2016Q2

REPORT INFORMATION
  Report Type: Spontaneous
  Country: US (occurrence: US)
  Receive Date: 20130828
  Receipt Date: 20160520
  Transmission Date: 20160815
  Serious: Yes (Hospitalization, Other)
  Sender: FDA-Public Use
  Company Number: US-GLAXOSMITHKLINE-A1039228A

PATIENT
  Sex: Female

DRUGS (6)
  1. FLOLAN [Suspect]
     Active Substance: EPOPROSTENOL SODIUM
     Indication: PULMONARY ARTERIAL HYPERTENSION
     Dosage: DOSE: 34.5 NG/KG/MIN CONTINUOUSLYCONCENTRATION: 45,000 NG/MLVIAL STRENGTH: 1.5 MGPUMP RATE: 66 [...]
     Route: 042
     Dates: start: 20120622
  2. FLOLAN [Suspect]
     Active Substance: EPOPROSTENOL SODIUM
     Dosage: UNK
  3. REVATIO [Concomitant]
     Active Substance: SILDENAFIL CITRATE
  4. FLOLAN [Suspect]
     Active Substance: EPOPROSTENOL SODIUM
     Dosage: 46 NG/KG/MIN, CO
  5. FLOLAN [Suspect]
     Active Substance: EPOPROSTENOL SODIUM
     Dosage: 46 NG/KG/MIN, CO
     Route: 042
  6. LETAIRIS [Concomitant]
     Active Substance: AMBRISENTAN

REACTIONS (5)
  - Device related infection [Unknown]
  - Hospitalisation [Unknown]
  - Urinary tract infection [Unknown]
  - Pain in jaw [Unknown]
  - Complication associated with device [Unknown]
